FAERS Safety Report 20190053 (Version 2)
Quarter: 2022Q1

REPORT INFORMATION
  Report Type: Report from Study
  Country: CN (occurrence: None)
  Receive Date: 20211215
  Receipt Date: 20220120
  Transmission Date: 20220423
  Serious: Yes (Hospitalization)
  Sender: FDA-Public Use
  Company Number: 2021A816794

PATIENT
  Age: 23262 Day
  Sex: Female

DRUGS (109)
  1. DURVALUMAB [Suspect]
     Active Substance: DURVALUMAB
     Indication: Bile duct cancer
     Route: 042
     Dates: start: 20210609, end: 20210609
  2. DURVALUMAB [Suspect]
     Active Substance: DURVALUMAB
     Indication: Bile duct cancer
     Route: 042
     Dates: start: 20210630, end: 20210630
  3. DURVALUMAB [Suspect]
     Active Substance: DURVALUMAB
     Indication: Bile duct cancer
     Route: 042
     Dates: start: 20210721, end: 20210721
  4. DURVALUMAB [Suspect]
     Active Substance: DURVALUMAB
     Indication: Bile duct cancer
     Route: 042
     Dates: start: 20210811, end: 20210811
  5. DURVALUMAB [Suspect]
     Active Substance: DURVALUMAB
     Indication: Bile duct cancer
     Route: 042
     Dates: start: 20210901, end: 20210901
  6. DURVALUMAB [Suspect]
     Active Substance: DURVALUMAB
     Indication: Bile duct cancer
     Route: 042
     Dates: start: 20210923, end: 20210923
  7. DURVALUMAB [Suspect]
     Active Substance: DURVALUMAB
     Indication: Bile duct cancer
     Route: 042
     Dates: start: 20211014, end: 20211014
  8. DURVALUMAB [Suspect]
     Active Substance: DURVALUMAB
     Indication: Bile duct cancer
     Route: 042
     Dates: start: 20211104, end: 20211104
  9. DURVALUMAB [Suspect]
     Active Substance: DURVALUMAB
     Indication: Bile duct cancer
     Route: 042
     Dates: start: 20211125, end: 20211125
  10. CISPLATIN [Suspect]
     Active Substance: CISPLATIN
     Indication: Bile duct cancer
     Dosage: 25 MG/M2 (EACH ADMINISTERED ON DAYS 1 AND 8 Q3W) UP TO 8 CYCLES
     Route: 042
     Dates: start: 20210609, end: 20210609
  11. CISPLATIN [Suspect]
     Active Substance: CISPLATIN
     Indication: Bile duct cancer
     Dosage: 25 MG/M2 (EACH ADMINISTERED ON DAYS 1 AND 8 Q3W) UP TO 8 CYCLES
     Route: 042
     Dates: start: 20210617, end: 20210617
  12. CISPLATIN [Suspect]
     Active Substance: CISPLATIN
     Indication: Bile duct cancer
     Dosage: 25 MG/M2 (EACH ADMINISTERED ON DAYS 1 AND 8 Q3W) UP TO 8 CYCLES
     Route: 042
     Dates: start: 20210630, end: 20210630
  13. CISPLATIN [Suspect]
     Active Substance: CISPLATIN
     Indication: Bile duct cancer
     Dosage: 25 MG/M2 (EACH ADMINISTERED ON DAYS 1 AND 8 Q3W) UP TO 8 CYCLES
     Route: 042
     Dates: start: 20210707, end: 20210707
  14. CISPLATIN [Suspect]
     Active Substance: CISPLATIN
     Indication: Bile duct cancer
     Dosage: 25 MG/M2 (EACH ADMINISTERED ON DAYS 1 AND 8 Q3W) UP TO 8 CYCLES
     Route: 042
     Dates: start: 20210721, end: 20210721
  15. CISPLATIN [Suspect]
     Active Substance: CISPLATIN
     Indication: Bile duct cancer
     Dosage: 25 MG/M2 (EACH ADMINISTERED ON DAYS 1 AND 8 Q3W) UP TO 8 CYCLES
     Route: 042
     Dates: start: 20210727, end: 20210727
  16. CISPLATIN [Suspect]
     Active Substance: CISPLATIN
     Indication: Bile duct cancer
     Dosage: 25 MG/M2 (EACH ADMINISTERED ON DAYS 1 AND 8 Q3W) UP TO 8 CYCLES
     Route: 042
     Dates: start: 20210811, end: 20210811
  17. CISPLATIN [Suspect]
     Active Substance: CISPLATIN
     Indication: Bile duct cancer
     Dosage: 25 MG/M2 (EACH ADMINISTERED ON DAYS 1 AND 8 Q3W) UP TO 8 CYCLES
     Route: 042
     Dates: start: 20210818, end: 20210818
  18. CISPLATIN [Suspect]
     Active Substance: CISPLATIN
     Indication: Bile duct cancer
     Dosage: 25 MG/M2 (EACH ADMINISTERED ON DAYS 1 AND 8 Q3W) UP TO 8 CYCLES
     Route: 042
     Dates: start: 20210901, end: 20210901
  19. CISPLATIN [Suspect]
     Active Substance: CISPLATIN
     Indication: Bile duct cancer
     Dosage: 25 MG/M2 (EACH ADMINISTERED ON DAYS 1 AND 8 Q3W) UP TO 8 CYCLES
     Route: 042
     Dates: start: 20210908, end: 20210908
  20. CISPLATIN [Suspect]
     Active Substance: CISPLATIN
     Indication: Bile duct cancer
     Dosage: 25 MG/M2 (EACH ADMINISTERED ON DAYS 1 AND 8 Q3W) UP TO 8 CYCLES
     Route: 042
     Dates: start: 20210923, end: 20210923
  21. CISPLATIN [Suspect]
     Active Substance: CISPLATIN
     Indication: Bile duct cancer
     Dosage: 25 MG/M2 (EACH ADMINISTERED ON DAYS 1 AND 8 Q3W) UP TO 8 CYCLES
     Route: 042
     Dates: start: 20210929, end: 20210929
  22. CISPLATIN [Suspect]
     Active Substance: CISPLATIN
     Indication: Bile duct cancer
     Dosage: 25 MG/M2 (EACH ADMINISTERED ON DAYS 1 AND 8 Q3W) UP TO 8 CYCLES
     Route: 042
     Dates: start: 20211014, end: 20211014
  23. CISPLATIN [Suspect]
     Active Substance: CISPLATIN
     Indication: Bile duct cancer
     Dosage: 25 MG/M2 (EACH ADMINISTERED ON DAYS 1 AND 8 Q3W) UP TO 8 CYCLES
     Route: 042
     Dates: start: 20211021, end: 20211021
  24. CISPLATIN [Suspect]
     Active Substance: CISPLATIN
     Indication: Bile duct cancer
     Dosage: 25 MG/M2 (EACH ADMINISTERED ON DAYS 1 AND 8 Q3W) UP TO 8 CYCLES
     Route: 042
     Dates: start: 20211104, end: 20211104
  25. CISPLATIN [Suspect]
     Active Substance: CISPLATIN
     Indication: Bile duct cancer
     Dosage: 25 MG/M2 (EACH ADMINISTERED ON DAYS 1 AND 8 Q3W) UP TO 8 CYCLES
     Route: 042
     Dates: start: 20211110, end: 20211110
  26. GEMCITABINE [Suspect]
     Active Substance: GEMCITABINE
     Indication: Bile duct cancer
     Dosage: 1000 MG/M2 (EACH ADMINISTERED ON DAYS 1 AND 8 Q3W) UP TO 8 CYCLES
     Route: 042
     Dates: start: 20210609, end: 20210609
  27. GEMCITABINE [Suspect]
     Active Substance: GEMCITABINE
     Indication: Bile duct cancer
     Dosage: 1000 MG/M2 (EACH ADMINISTERED ON DAYS 1 AND 8 Q3W) UP TO 8 CYCLES
     Route: 042
     Dates: start: 20210617, end: 20210617
  28. GEMCITABINE [Suspect]
     Active Substance: GEMCITABINE
     Indication: Bile duct cancer
     Dosage: 1000 MG/M2 (EACH ADMINISTERED ON DAYS 1 AND 8 Q3W) UP TO 8 CYCLES
     Route: 042
     Dates: start: 20210630, end: 20210630
  29. GEMCITABINE [Suspect]
     Active Substance: GEMCITABINE
     Indication: Bile duct cancer
     Dosage: 1000 MG/M2 (EACH ADMINISTERED ON DAYS 1 AND 8 Q3W) UP TO 8 CYCLES
     Route: 042
     Dates: start: 20210707, end: 20210707
  30. GEMCITABINE [Suspect]
     Active Substance: GEMCITABINE
     Indication: Bile duct cancer
     Dosage: 1000 MG/M2 (EACH ADMINISTERED ON DAYS 1 AND 8 Q3W) UP TO 8 CYCLES
     Route: 042
     Dates: start: 20210721, end: 20210721
  31. GEMCITABINE [Suspect]
     Active Substance: GEMCITABINE
     Indication: Bile duct cancer
     Dosage: 1000 MG/M2 (EACH ADMINISTERED ON DAYS 1 AND 8 Q3W) UP TO 8 CYCLES
     Route: 042
     Dates: start: 20210727, end: 20210727
  32. GEMCITABINE [Suspect]
     Active Substance: GEMCITABINE
     Indication: Bile duct cancer
     Dosage: 1000 MG/M2 (EACH ADMINISTERED ON DAYS 1 AND 8 Q3W) UP TO 8 CYCLES
     Route: 042
     Dates: start: 20210811, end: 20210811
  33. GEMCITABINE [Suspect]
     Active Substance: GEMCITABINE
     Indication: Bile duct cancer
     Dosage: 1000 MG/M2 (EACH ADMINISTERED ON DAYS 1 AND 8 Q3W) UP TO 8 CYCLES
     Route: 042
     Dates: start: 20210818, end: 20210818
  34. GEMCITABINE [Suspect]
     Active Substance: GEMCITABINE
     Indication: Bile duct cancer
     Dosage: 1000 MG/M2 (EACH ADMINISTERED ON DAYS 1 AND 8 Q3W) UP TO 8 CYCLES
     Route: 042
     Dates: start: 20210901, end: 20210901
  35. GEMCITABINE [Suspect]
     Active Substance: GEMCITABINE
     Indication: Bile duct cancer
     Dosage: 1000 MG/M2 (EACH ADMINISTERED ON DAYS 1 AND 8 Q3W) UP TO 8 CYCLES
     Route: 042
     Dates: start: 20210908, end: 20210908
  36. GEMCITABINE [Suspect]
     Active Substance: GEMCITABINE
     Indication: Bile duct cancer
     Dosage: 1000 MG/M2 (EACH ADMINISTERED ON DAYS 1 AND 8 Q3W) UP TO 8 CYCLES
     Route: 042
     Dates: start: 20210923, end: 20210923
  37. GEMCITABINE [Suspect]
     Active Substance: GEMCITABINE
     Indication: Bile duct cancer
     Dosage: 1000 MG/M2 (EACH ADMINISTERED ON DAYS 1 AND 8 Q3W) UP TO 8 CYCLES
     Route: 042
     Dates: start: 20210929, end: 20210929
  38. GEMCITABINE [Suspect]
     Active Substance: GEMCITABINE
     Indication: Bile duct cancer
     Dosage: 1000 MG/M2 (EACH ADMINISTERED ON DAYS 1 AND 8 Q3W) UP TO 8 CYCLES
     Route: 042
     Dates: start: 20211014, end: 20211014
  39. GEMCITABINE [Suspect]
     Active Substance: GEMCITABINE
     Indication: Bile duct cancer
     Dosage: 1000 MG/M2 (EACH ADMINISTERED ON DAYS 1 AND 8 Q3W) UP TO 8 CYCLES
     Route: 042
     Dates: start: 20211021, end: 20211021
  40. GEMCITABINE [Suspect]
     Active Substance: GEMCITABINE
     Indication: Bile duct cancer
     Dosage: 1000 MG/M2 (EACH ADMINISTERED ON DAYS 1 AND 8 Q3W) UP TO 8 CYCLES
     Route: 042
     Dates: start: 20211104, end: 20211104
  41. GEMCITABINE [Suspect]
     Active Substance: GEMCITABINE
     Indication: Bile duct cancer
     Dosage: 1000 MG/M2 (EACH ADMINISTERED ON DAYS 1 AND 8 Q3W) UP TO 8 CYCLES
     Route: 042
     Dates: start: 20211110, end: 20211110
  42. PROMEPRAZOLE INJECTION [Concomitant]
     Indication: Inhibin A
     Route: 042
     Dates: start: 20211014, end: 20211115
  43. PROMEPRAZOLE INJECTION [Concomitant]
     Indication: Protein total
     Route: 042
     Dates: start: 20211014, end: 20211115
  44. PROMEPRAZOLE INJECTION [Concomitant]
     Indication: Prophylaxis of nausea and vomiting
     Route: 042
     Dates: start: 20211014, end: 20211115
  45. PROMEPRAZOLE INJECTION [Concomitant]
     Indication: Inhibin A
     Route: 042
     Dates: start: 20211021, end: 20211021
  46. PROMEPRAZOLE INJECTION [Concomitant]
     Indication: Protein total
     Route: 042
     Dates: start: 20211021, end: 20211021
  47. PROMEPRAZOLE INJECTION [Concomitant]
     Indication: Prophylaxis of nausea and vomiting
     Route: 042
     Dates: start: 20211021, end: 20211021
  48. PROMEPRAZOLE INJECTION [Concomitant]
     Indication: Inhibin A
     Route: 042
     Dates: start: 20211104, end: 20211104
  49. PROMEPRAZOLE INJECTION [Concomitant]
     Indication: Protein total
     Route: 042
     Dates: start: 20211104, end: 20211104
  50. PROMEPRAZOLE INJECTION [Concomitant]
     Indication: Prophylaxis of nausea and vomiting
     Route: 042
     Dates: start: 20211104, end: 20211104
  51. PROMEPRAZOLE INJECTION [Concomitant]
     Indication: Inhibin A
     Route: 042
     Dates: start: 20211110, end: 20211110
  52. PROMEPRAZOLE INJECTION [Concomitant]
     Indication: Protein total
     Route: 042
     Dates: start: 20211110, end: 20211110
  53. PROMEPRAZOLE INJECTION [Concomitant]
     Indication: Prophylaxis of nausea and vomiting
     Route: 042
     Dates: start: 20211110, end: 20211110
  54. COMPOUND AMINO ACID NEEDLE [Concomitant]
     Indication: Nutritional supplementation
     Route: 042
     Dates: start: 20211104, end: 20211104
  55. ONDANSETRON HYDROCHLORIDE [Concomitant]
     Active Substance: ONDANSETRON HYDROCHLORIDE
     Indication: Prophylaxis of nausea and vomiting
     Route: 048
     Dates: start: 20211014, end: 20211015
  56. ONDANSETRON HYDROCHLORIDE [Concomitant]
     Active Substance: ONDANSETRON HYDROCHLORIDE
     Indication: Nutritional supplementation
     Route: 048
     Dates: start: 20211014, end: 20211015
  57. ONDANSETRON HYDROCHLORIDE [Concomitant]
     Active Substance: ONDANSETRON HYDROCHLORIDE
     Indication: Vomiting
     Route: 048
     Dates: start: 20211014, end: 20211015
  58. ONDANSETRON HYDROCHLORIDE [Concomitant]
     Active Substance: ONDANSETRON HYDROCHLORIDE
     Indication: Prophylaxis of nausea and vomiting
     Route: 048
     Dates: start: 20211021, end: 20211022
  59. ONDANSETRON HYDROCHLORIDE [Concomitant]
     Active Substance: ONDANSETRON HYDROCHLORIDE
     Indication: Nutritional supplementation
     Route: 048
     Dates: start: 20211021, end: 20211022
  60. ONDANSETRON HYDROCHLORIDE [Concomitant]
     Active Substance: ONDANSETRON HYDROCHLORIDE
     Indication: Vomiting
     Route: 048
     Dates: start: 20211021, end: 20211022
  61. ONDANSETRON HYDROCHLORIDE [Concomitant]
     Active Substance: ONDANSETRON HYDROCHLORIDE
     Indication: Prophylaxis of nausea and vomiting
     Route: 048
     Dates: start: 20211016, end: 20211016
  62. ONDANSETRON HYDROCHLORIDE [Concomitant]
     Active Substance: ONDANSETRON HYDROCHLORIDE
     Indication: Nutritional supplementation
     Route: 048
     Dates: start: 20211016, end: 20211016
  63. ONDANSETRON HYDROCHLORIDE [Concomitant]
     Active Substance: ONDANSETRON HYDROCHLORIDE
     Indication: Vomiting
     Route: 048
     Dates: start: 20211016, end: 20211016
  64. ONDANSETRON HYDROCHLORIDE [Concomitant]
     Active Substance: ONDANSETRON HYDROCHLORIDE
     Indication: Prophylaxis of nausea and vomiting
     Route: 048
     Dates: start: 20211023, end: 20211024
  65. ONDANSETRON HYDROCHLORIDE [Concomitant]
     Active Substance: ONDANSETRON HYDROCHLORIDE
     Indication: Nutritional supplementation
     Route: 048
     Dates: start: 20211023, end: 20211024
  66. ONDANSETRON HYDROCHLORIDE [Concomitant]
     Active Substance: ONDANSETRON HYDROCHLORIDE
     Indication: Vomiting
     Route: 048
     Dates: start: 20211023, end: 20211024
  67. ONDANSETRON HYDROCHLORIDE [Concomitant]
     Active Substance: ONDANSETRON HYDROCHLORIDE
     Indication: Prophylaxis of nausea and vomiting
     Route: 048
     Dates: start: 20211104, end: 20211104
  68. ONDANSETRON HYDROCHLORIDE [Concomitant]
     Active Substance: ONDANSETRON HYDROCHLORIDE
     Indication: Nutritional supplementation
     Route: 048
     Dates: start: 20211104, end: 20211104
  69. ONDANSETRON HYDROCHLORIDE [Concomitant]
     Active Substance: ONDANSETRON HYDROCHLORIDE
     Indication: Vomiting
     Route: 048
     Dates: start: 20211104, end: 20211104
  70. ONDANSETRON HYDROCHLORIDE [Concomitant]
     Active Substance: ONDANSETRON HYDROCHLORIDE
     Indication: Prophylaxis of nausea and vomiting
     Route: 048
     Dates: start: 20211110, end: 20211111
  71. ONDANSETRON HYDROCHLORIDE [Concomitant]
     Active Substance: ONDANSETRON HYDROCHLORIDE
     Indication: Nutritional supplementation
     Route: 048
     Dates: start: 20211110, end: 20211111
  72. ONDANSETRON HYDROCHLORIDE [Concomitant]
     Active Substance: ONDANSETRON HYDROCHLORIDE
     Indication: Vomiting
     Route: 048
     Dates: start: 20211110, end: 20211111
  73. ONDANSETRON HYDROCHLORIDE [Concomitant]
     Active Substance: ONDANSETRON HYDROCHLORIDE
     Indication: Prophylaxis of nausea and vomiting
     Route: 048
     Dates: start: 20211106, end: 20211107
  74. ONDANSETRON HYDROCHLORIDE [Concomitant]
     Active Substance: ONDANSETRON HYDROCHLORIDE
     Indication: Nutritional supplementation
     Route: 048
     Dates: start: 20211106, end: 20211107
  75. ONDANSETRON HYDROCHLORIDE [Concomitant]
     Active Substance: ONDANSETRON HYDROCHLORIDE
     Indication: Vomiting
     Route: 048
     Dates: start: 20211106, end: 20211107
  76. DEXAMETHASONE [Concomitant]
     Active Substance: DEXAMETHASONE
     Indication: Premature baby
     Route: 042
     Dates: start: 20211014, end: 20211014
  77. DEXAMETHASONE [Concomitant]
     Active Substance: DEXAMETHASONE
     Indication: Premature baby
     Route: 042
     Dates: start: 20211021, end: 20211021
  78. DEXAMETHASONE [Concomitant]
     Active Substance: DEXAMETHASONE
     Indication: Premature baby
     Route: 042
     Dates: start: 20211104, end: 20211104
  79. DEXAMETHASONE [Concomitant]
     Active Substance: DEXAMETHASONE
     Indication: Premature baby
     Route: 042
     Dates: start: 20211110, end: 20211110
  80. ASCORBIC ACID [Concomitant]
     Active Substance: ASCORBIC ACID
     Indication: Nutritional supplementation
     Route: 042
     Dates: start: 20211014, end: 20211015
  81. ASCORBIC ACID [Concomitant]
     Active Substance: ASCORBIC ACID
     Indication: Nutritional supplementation
     Route: 042
     Dates: start: 20211021, end: 20211021
  82. ASCORBIC ACID [Concomitant]
     Active Substance: ASCORBIC ACID
     Indication: Nutritional supplementation
     Route: 042
     Dates: start: 20211104, end: 20211104
  83. ASCORBIC ACID [Concomitant]
     Active Substance: ASCORBIC ACID
     Indication: Nutritional supplementation
     Route: 042
     Dates: start: 20211110, end: 20211110
  84. VITAMIN B6 INJECTIONS [Concomitant]
     Indication: Nutritional supplementation
     Route: 042
     Dates: start: 20211014, end: 20211015
  85. VITAMIN B6 INJECTIONS [Concomitant]
     Indication: Nutritional supplementation
     Route: 042
     Dates: start: 20211021, end: 20211021
  86. VITAMIN B6 INJECTIONS [Concomitant]
     Indication: Nutritional supplementation
     Route: 042
     Dates: start: 20211104, end: 20211104
  87. VITAMIN B6 INJECTIONS [Concomitant]
     Indication: Nutritional supplementation
     Route: 042
     Dates: start: 20211110, end: 20211110
  88. GLUCOSE SODIUM CHLORIDE NEEDLE [Concomitant]
     Indication: Nutritional supplementation
     Route: 042
     Dates: start: 20211014, end: 20211015
  89. GLUCOSE SODIUM CHLORIDE NEEDLE [Concomitant]
     Indication: Nutritional supplementation
     Route: 042
     Dates: start: 20211021, end: 20211021
  90. GLUCOSE SODIUM CHLORIDE NEEDLE [Concomitant]
     Indication: Nutritional supplementation
     Route: 042
     Dates: start: 20211104, end: 20211104
  91. GLUCOSE SODIUM CHLORIDE NEEDLE [Concomitant]
     Indication: Nutritional supplementation
     Route: 042
     Dates: start: 20211110, end: 20211110
  92. RABEPRAZOLE SODIUM ENTERIC-COATED CAPSULES [Concomitant]
     Indication: Protein total
     Route: 048
     Dates: start: 20211016, end: 20211016
  93. RABEPRAZOLE SODIUM ENTERIC-COATED CAPSULES [Concomitant]
     Indication: Prophylaxis of nausea and vomiting
     Route: 048
     Dates: start: 20211016, end: 20211016
  94. RABEPRAZOLE SODIUM ENTERIC-COATED CAPSULES [Concomitant]
     Indication: Protein total
     Route: 048
     Dates: start: 20211023, end: 20211024
  95. RABEPRAZOLE SODIUM ENTERIC-COATED CAPSULES [Concomitant]
     Indication: Prophylaxis of nausea and vomiting
     Route: 048
     Dates: start: 20211023, end: 20211024
  96. RABEPRAZOLE SODIUM ENTERIC-COATED CAPSULES [Concomitant]
     Indication: Protein total
     Route: 048
     Dates: start: 20211106, end: 20211107
  97. RABEPRAZOLE SODIUM ENTERIC-COATED CAPSULES [Concomitant]
     Indication: Prophylaxis of nausea and vomiting
     Route: 048
     Dates: start: 20211106, end: 20211107
  98. RECOMBINANT HUMAN GRANULOCYTE COLONY STIMULATING FACTOR INJECTION [Concomitant]
     Indication: White blood cell count decreased
     Route: 042
     Dates: start: 20211013, end: 20211013
  99. RECOMBINANT HUMAN GRANULOCYTE COLONY STIMULATING FACTOR INJECTION [Concomitant]
     Indication: White blood cell count decreased
     Route: 042
     Dates: start: 20211020, end: 20211021
  100. RECOMBINANT HUMAN GRANULOCYTE COLONY STIMULATING FACTOR INJECTION [Concomitant]
     Indication: White blood cell count decreased
     Route: 042
     Dates: start: 20211110, end: 20211110
  101. IRON SUCROSE [Concomitant]
     Active Substance: IRON SUCROSE
     Indication: Anaemia
     Route: 042
     Dates: start: 20211021, end: 20211021
  102. IRON SUCROSE [Concomitant]
     Active Substance: IRON SUCROSE
     Indication: Anaemia
     Route: 042
     Dates: start: 20211103, end: 20211105
  103. IRON SUCROSE [Concomitant]
     Active Substance: IRON SUCROSE
     Indication: Anaemia
     Route: 042
     Dates: start: 20211110, end: 20211111
  104. ITOPRIDE HYDROCHLORIDE TABLETS [Concomitant]
     Indication: Increased appetite
     Route: 048
     Dates: start: 20211021, end: 20211021
  105. COMPOUND AZINTAMIDE ENTERIC-COATED TABLETS [Concomitant]
     Indication: Increased appetite
     Route: 048
     Dates: start: 20211022, end: 20211027
  106. COMPOUND AZINTAMIDE ENTERIC-COATED TABLETS [Concomitant]
     Indication: Increased appetite
     Route: 048
     Dates: start: 20211030
  107. COMPOUND AZINTAMIDE ENTERIC-COATED TABLETS [Concomitant]
     Indication: Increased appetite
     Route: 048
     Dates: start: 20211030, end: 20211121
  108. FERROUS SUCCINATE TABLETSCAPSULES [Concomitant]
     Indication: Anaemia
     Route: 048
     Dates: start: 20211105, end: 20211109
  109. VITAMIN C TABLETS [Concomitant]
     Indication: Anaemia
     Route: 048
     Dates: start: 20211105, end: 20211109

REACTIONS (1)
  - Platelet count decreased [Recovered/Resolved]

NARRATIVE: CASE EVENT DATE: 20211111
